FAERS Safety Report 20415522 (Version 4)
Quarter: 2022Q2

REPORT INFORMATION
  Report Type: Spontaneous
  Country: DE (occurrence: DE)
  Receive Date: 20220202
  Receipt Date: 20220430
  Transmission Date: 20220721
  Serious: Yes (Other)
  Sender: FDA-Public Use
  Company Number: DE-NOVARTISPH-NVSC2022DE019416

PATIENT
  Sex: Female
  Weight: 70 kg

DRUGS (3)
  1. BEOVU [Suspect]
     Active Substance: BROLUCIZUMAB-DBLL
     Indication: Age-related macular degeneration
     Dosage: UNK, QMO /Q4W
     Route: 031
     Dates: start: 20210923
  2. BEOVU [Suspect]
     Active Substance: BROLUCIZUMAB-DBLL
     Dosage: UNK
     Route: 065
     Dates: start: 20211025
  3. BEOVU [Suspect]
     Active Substance: BROLUCIZUMAB-DBLL
     Dosage: UNK, QMO/Q4W
     Route: 031
     Dates: start: 20211125

REACTIONS (10)
  - Corneal decompensation [Recovered/Resolved]
  - Papilloedema [Unknown]
  - Retinal vasculitis [Recovered/Resolved]
  - Visual acuity reduced [Recovered/Resolved]
  - Chorioretinitis [Recovering/Resolving]
  - Retinal haemorrhage [Unknown]
  - Vitritis [Not Recovered/Not Resolved]
  - Ocular hypertension [Recovered/Resolved]
  - Phlebitis [Unknown]
  - Eye inflammation [Recovering/Resolving]

NARRATIVE: CASE EVENT DATE: 20220119
